FAERS Safety Report 6562333-2 (Version None)
Quarter: 2010Q1

REPORT INFORMATION
  Report Type: 
  Country: None (occurrence: None)
  Receive Date: 20100130
  Receipt Date: 20091106
  Transmission Date: 20100710
  Serious: No
  Sender: FDA-Public Use
  Company Number: US-ABBOTT-09P-163-0607326-00

PATIENT
  Sex: Female

DRUGS (3)
  1. HUMIRA [Suspect]
     Indication: CROHN'S DISEASE
     Dates: start: 20090601
  2. LEVETIRACETAM [Concomitant]
     Indication: CONVULSION
  3. PHENYTOIN [Concomitant]
     Indication: CONVULSION

REACTIONS (1)
  - URTICARIA [None]
